FAERS Safety Report 10996616 (Version 1)
Quarter: 2015Q2

REPORT INFORMATION
  Report Type: Spontaneous
  Country: US (occurrence: None)
  Receive Date: 20150407
  Receipt Date: 20150407
  Transmission Date: 20150821
  Serious: Yes (Disabling, Other)
  Sender: FDA-Public Use
  Company Number: None

PATIENT
  Age: 54 Year
  Sex: Female
  Weight: 79.38 kg

DRUGS (12)
  1. DULOXETINE [Suspect]
     Active Substance: DULOXETINE
     Indication: MAJOR DEPRESSION
     Dosage: 1 60MG CAPSULE ONCE DAILY TAKEN BY MOUTH
     Route: 048
     Dates: start: 20140701, end: 20150331
  2. LEVOTHYROXINE [Concomitant]
     Active Substance: LEVOTHYROXINE
  3. CITRICAL [Concomitant]
     Active Substance: CALCIUM CITRATE
  4. TRAZODONE [Concomitant]
     Active Substance: TRAZODONE HYDROCHLORIDE
  5. DULOXETINE [Suspect]
     Active Substance: DULOXETINE
     Indication: FIBROMYALGIA
     Dosage: 1 60MG CAPSULE ONCE DAILY TAKEN BY MOUTH
     Route: 048
     Dates: start: 20140701, end: 20150331
  6. DULOXETINE [Concomitant]
     Active Substance: DULOXETINE
     Dosage: 1 30MG CAPSULE ONCE DAILY TAKEN BY MOUTH
     Route: 048
     Dates: start: 20141101, end: 20150331
  7. CLIMARA [Concomitant]
     Active Substance: ESTRADIOL
  8. VITAMINS [Concomitant]
     Active Substance: VITAMINS
  9. ZOLOFT [Concomitant]
     Active Substance: SERTRALINE HYDROCHLORIDE
  10. XANAX [Concomitant]
     Active Substance: ALPRAZOLAM
  11. DULOXETINE [Concomitant]
     Active Substance: DULOXETINE
     Indication: FIBROMYALGIA
     Dosage: 1 30MG CAPSULE ONCE DAILY TAKEN BY MOUTH
     Route: 048
     Dates: start: 20141101, end: 20150331
  12. CENTRUM SILVER [Concomitant]
     Active Substance: VITAMINS

REACTIONS (6)
  - Product substitution issue [None]
  - Malaise [None]
  - Depression [None]
  - Headache [None]
  - Anxiety [None]
  - Myalgia [None]

NARRATIVE: CASE EVENT DATE: 20140701
